FAERS Safety Report 4278515-9 (Version None)
Quarter: 2004Q1

REPORT INFORMATION
  Report Type: 
  Country: None (occurrence: None)
  Receive Date: 20040121
  Receipt Date: 20040105
  Transmission Date: 20041129
  Serious: Yes (Other)
  Sender: FDA-Public Use
  Company Number: USA040155865

PATIENT
  Age: 47 Year
  Sex: Female

DRUGS (2)
  1. EVISTA [Suspect]
     Dates: start: 20030101
  2. MULTIVITAMIN [Concomitant]

REACTIONS (1)
  - MITRAL VALVE PROLAPSE [None]
